FAERS Safety Report 8746134 (Version 2)
Quarter: 2012Q4

REPORT INFORMATION
  Report Type: 
  Country: FR (occurrence: FR)
  Receive Date: 20120827
  Receipt Date: 20120828
  Transmission Date: 20130627
  Serious: Yes (Hospitalization)
  Sender: FDA-Public Use
  Company Number: PHHY2012FR072905

PATIENT
  Age: 75 Year
  Sex: Male

DRUGS (10)
  1. CARBAMAZEPINE [Suspect]
     Indication: TRIGEMINAL NEURALGIA
     Dosage: 200 mg, TID
     Dates: start: 20110325, end: 20110424
  2. CARBAMAZEPINE [Suspect]
     Dosage: UNK UKN, total 3 intakes
     Dates: start: 20110503
  3. CARBAMAZEPINE [Suspect]
     Dates: end: 20110504
  4. PLAVIX [Concomitant]
     Route: 048
  5. ENALAPRIL MALEATE AND HYDROCHLOROTHIAZIDE [Concomitant]
     Route: 048
  6. ATORVASTATIN [Concomitant]
     Route: 048
  7. INEXIUM [Concomitant]
     Route: 048
  8. SERETIDE DISKUS [Concomitant]
     Dosage: UNK UKN, one inhalation daily
  9. AMOXICILLIN SODIUM [Concomitant]
     Indication: PHARYNGITIS
     Dosage: 1 g, BID
     Route: 048
     Dates: start: 20110413, end: 20110418
  10. PREDNISOLONE [Concomitant]
     Indication: PHARYNGITIS
     Dosage: 40 mg, daily
     Dates: start: 20110413, end: 20110415

REACTIONS (24)
  - Sepsis [Unknown]
  - Drug reaction with eosinophilia and systemic symptoms [Recovered/Resolved with Sequelae]
  - Drug eruption [Unknown]
  - Rash maculo-papular [Not Recovered/Not Resolved]
  - Skin exfoliation [Unknown]
  - Rash [Unknown]
  - Purpura [Unknown]
  - Skin lesion [Recovering/Resolving]
  - Mouth injury [Recovered/Resolved]
  - Erythema of eyelid [Unknown]
  - Renal impairment [Recovering/Resolving]
  - Eosinophilia [Unknown]
  - Thrombocytopenia [Unknown]
  - Cheilitis [Unknown]
  - Inflammation [Unknown]
  - Gamma-glutamyltransferase [Unknown]
  - Myelocytosis [Unknown]
  - Haemoconcentration [Unknown]
  - Feeding disorder [Unknown]
  - Glossitis [Unknown]
  - Hypothyroidism [Unknown]
  - Hypogammaglobulinaemia [Unknown]
  - Hypotension [Unknown]
  - Human herpes virus 6 serology positive [Unknown]
